FAERS Safety Report 24421244 (Version 1)
Quarter: 2024Q4

REPORT INFORMATION
  Report Type: Spontaneous
  Country: JP (occurrence: JP)
  Receive Date: 20241010
  Receipt Date: 20241010
  Transmission Date: 20250114
  Serious: Yes (Other)
  Sender: ASTELLAS
  Company Number: JP-ASTELLAS-2024JP002013

PATIENT
  Age: 3 Decade
  Sex: Male

DRUGS (18)
  1. PROGRAF [Suspect]
     Active Substance: TACROLIMUS
     Indication: Prophylaxis against graft versus host disease
     Route: 065
     Dates: start: 2019
  2. PROGRAF [Suspect]
     Active Substance: TACROLIMUS
     Dosage: TAPERED
     Route: 065
  3. PROGRAF [Suspect]
     Active Substance: TACROLIMUS
     Route: 065
     Dates: start: 202108
  4. PROGRAF [Suspect]
     Active Substance: TACROLIMUS
     Dosage: TAPERED
     Route: 065
  5. XOSPATA [Suspect]
     Active Substance: GILTERITINIB
     Indication: Acute myeloid leukaemia
     Route: 048
     Dates: start: 20190920, end: 2019
  6. XOSPATA [Suspect]
     Active Substance: GILTERITINIB
     Route: 048
     Dates: start: 2019, end: 20191121
  7. XOSPATA [Suspect]
     Active Substance: GILTERITINIB
     Route: 048
     Dates: start: 202011
  8. XOSPATA [Suspect]
     Active Substance: GILTERITINIB
     Route: 048
  9. CYTARABINE [Concomitant]
     Active Substance: CYTARABINE
     Indication: Bone marrow conditioning regimen
     Route: 065
     Dates: start: 2019, end: 2019
  10. CYTARABINE [Concomitant]
     Active Substance: CYTARABINE
     Indication: Chemotherapy
     Route: 065
     Dates: start: 201904, end: 201904
  11. CYTARABINE [Concomitant]
     Active Substance: CYTARABINE
     Indication: Chemotherapy
     Route: 065
     Dates: start: 2019, end: 2019
  12. CYTARABINE [Concomitant]
     Active Substance: CYTARABINE
     Route: 065
     Dates: start: 2019, end: 2019
  13. CYTARABINE [Concomitant]
     Active Substance: CYTARABINE
     Route: 065
     Dates: start: 2019, end: 2019
  14. CYTARABINE [Concomitant]
     Active Substance: CYTARABINE
     Route: 065
     Dates: start: 202102, end: 202102
  15. CYTARABINE [Concomitant]
     Active Substance: CYTARABINE
     Route: 065
     Dates: start: 202106, end: 202106
  16. CYTARABINE [Concomitant]
     Active Substance: CYTARABINE
     Route: 065
     Dates: start: 202108, end: 202108
  17. ACLARUBICIN HYDROCHLORIDE [Concomitant]
     Active Substance: ACLARUBICIN HYDROCHLORIDE
     Indication: Chemotherapy
     Route: 065
     Dates: start: 2019, end: 2019
  18. DAUNORUBICIN HYDROCHLORIDE [Concomitant]
     Active Substance: DAUNORUBICIN HYDROCHLORIDE
     Indication: Chemotherapy
     Route: 065
     Dates: start: 2019, end: 2019

REACTIONS (5)
  - Acute myeloid leukaemia recurrent [Recovering/Resolving]
  - Full blood count decreased [Recovered/Resolved]
  - COVID-19 [Recovered/Resolved]
  - Gene mutation identification test negative [Unknown]
  - Therapeutic response decreased [Unknown]

NARRATIVE: CASE EVENT DATE: 20190101
